FAERS Safety Report 4685939-4 (Version None)
Quarter: 2005Q2

REPORT INFORMATION
  Report Type: 
  Country: None (occurrence: None)
  Receive Date: 20050606
  Receipt Date: 20050606
  Transmission Date: 20051028
  Serious: Yes (Other)
  Sender: FDA-Public Use
  Company Number: None

PATIENT
  Sex: Male
  Weight: 55 kg

DRUGS (2)
  1. CISPLATIN 100 MG/M2 ON DAYS 1, 22, AND 43. [Suspect]
     Indication: NEOPLASM MALIGNANT
     Dosage: 100 MG/M2 ON DAYS 1, 22, AND 43.
     Dates: start: 20050419
  2. RADIATION 70 GY/35 FX FOR 7 WEEKS [Suspect]
     Indication: NEOPLASM MALIGNANT
     Dosage: 70 GY/35 FX FOR 7 WEEKS

REACTIONS (7)
  - ANAEMIA [None]
  - BLOOD CREATININE INCREASED [None]
  - BLOOD UREA INCREASED [None]
  - DEHYDRATION [None]
  - DIVERTICULITIS [None]
  - HAEMORRHOIDS [None]
  - PAIN [None]
